FAERS Safety Report 4850053-1 (Version None)
Quarter: 2005Q4

REPORT INFORMATION
  Report Type: 
  Country: None (occurrence: None)
  Receive Date: 20051123
  Receipt Date: 20041207
  Transmission Date: 20060501
  Serious: Yes (Hospitalization, Other)
  Sender: FDA-Public Use
  Company Number: 2004094463

PATIENT
  Sex: Female

DRUGS (7)
  1. LIPITOR [Suspect]
     Indication: ILL-DEFINED DISORDER
     Dosage: ORAL
     Route: 048
     Dates: end: 20040519
  2. ROSIGLITAZONE MALEATE [Concomitant]
  3. PAROXETINE HCL [Concomitant]
  4. METFORMIN HCL [Concomitant]
  5. LOPERAMIDE HYDROCHLORIDE [Concomitant]
  6. NSAID'S (NSAID'S) [Concomitant]
  7. GLIPIZIDE [Concomitant]

REACTIONS (3)
  - ALANINE AMINOTRANSFERASE INCREASED [None]
  - ASPARTATE AMINOTRANSFERASE INCREASED [None]
  - RHABDOMYOLYSIS [None]
